FAERS Safety Report 5613946-3 (Version None)
Quarter: 2008Q1

REPORT INFORMATION
  Report Type: 
  Country: None (occurrence: None)
  Receive Date: 20080129
  Receipt Date: 20080121
  Transmission Date: 20080703
  Serious: Yes (Other)
  Sender: FDA-Public Use
  Company Number: 2008PV000005

PATIENT
  Age: 61 Year
  Sex: Male
  Weight: 87 kg

DRUGS (3)
  1. DEPOCYT [Suspect]
     Indication: METASTASES TO MENINGES
     Dosage: 50 MG; QD; INTH
     Route: 037
     Dates: start: 20070301, end: 20070629
  2. CHEMOTHERAPEUTICS NOS [Suspect]
  3. CHEMOTHERAPEUTICS NOS [Concomitant]

REACTIONS (5)
  - FALL [None]
  - GAIT DISTURBANCE [None]
  - LEUKOENCEPHALOPATHY [None]
  - MENTAL DISORDER DUE TO A GENERAL MEDICAL CONDITION [None]
  - NEUROTOXICITY [None]
